FAERS Safety Report 20583288 (Version 2)
Quarter: 2022Q1

REPORT INFORMATION
  Report Type: Report from Study
  Country: US (occurrence: None)
  Receive Date: 20220311
  Receipt Date: 20220318
  Transmission Date: 20220423
  Serious: Yes (Other)
  Sender: FDA-Public Use
  Company Number: US-Eisai Medical Research-EC-2022-110062

PATIENT
  Age: 71 Year
  Sex: Female
  Weight: 89.3 kg

DRUGS (12)
  1. LENVIMA [Suspect]
     Active Substance: LENVATINIB
     Indication: Hepatocellular carcinoma
     Route: 048
     Dates: start: 20220112, end: 202201
  2. LENVIMA [Suspect]
     Active Substance: LENVATINIB
     Route: 048
     Dates: start: 202201, end: 2022
  3. LENVIMA [Suspect]
     Active Substance: LENVATINIB
     Route: 048
     Dates: start: 2022, end: 202203
  4. MAGNESIUM [Concomitant]
     Active Substance: MAGNESIUM
     Route: 065
  5. TRAMADOL HCL [Concomitant]
     Route: 065
  6. D3-50 [Concomitant]
     Route: 065
  7. LACTULOSE [Concomitant]
     Active Substance: LACTULOSE
  8. SPIRONOLACTONE [Concomitant]
     Active Substance: SPIRONOLACTONE
  9. OMEPRAZOLE [Concomitant]
     Active Substance: OMEPRAZOLE
  10. COREG [Concomitant]
     Active Substance: CARVEDILOL
  11. XIFAXAN [Concomitant]
     Active Substance: RIFAXIMIN
  12. ZINC-15 [Concomitant]

REACTIONS (2)
  - Hepatic failure [Unknown]
  - Generalised oedema [Not Recovered/Not Resolved]

NARRATIVE: CASE EVENT DATE: 20220101
